FAERS Safety Report 22079251 (Version 8)
Quarter: 2025Q1

REPORT INFORMATION
  Report Type: Report from Study
  Country: US (occurrence: US)
  Receive Date: 20230309
  Receipt Date: 20250308
  Transmission Date: 20250409
  Serious: Yes (Hospitalization, Other)
  Sender: TAKEDA
  Company Number: US-TAKEDA-2022TUS038861

PATIENT
  Age: 75 Year
  Sex: Female
  Weight: 56 kg

DRUGS (25)
  1. TEDUGLUTIDE [Suspect]
     Active Substance: TEDUGLUTIDE
     Indication: Short-bowel syndrome
     Dosage: 0.27 MILLILITER, QD
  2. TEDUGLUTIDE [Suspect]
     Active Substance: TEDUGLUTIDE
     Dosage: 0.28 MILLILITER, QD
  3. TEDUGLUTIDE [Suspect]
     Active Substance: TEDUGLUTIDE
     Dosage: 2.98 MILLIGRAM, QD
  4. TEDUGLUTIDE [Suspect]
     Active Substance: TEDUGLUTIDE
     Dosage: 2.98 MILLIGRAM, QD
  5. MUPIROCIN [Concomitant]
     Active Substance: MUPIROCIN
  6. PENTASA [Concomitant]
     Active Substance: MESALAMINE
  7. ALLOPURINOL [Concomitant]
     Active Substance: ALLOPURINOL
  8. OMEPRAZOLE [Concomitant]
     Active Substance: OMEPRAZOLE
  9. VITAMIN C [Concomitant]
     Active Substance: ASCORBIC ACID
  10. ZINC [Concomitant]
     Active Substance: ZINC
  11. FERROUS GLUCONATE [Concomitant]
     Active Substance: FERROUS GLUCONATE
  12. ACYCLOVIR [Concomitant]
     Active Substance: ACYCLOVIR
  13. OPIUM TINCTURE [Concomitant]
     Active Substance: MORPHINE
  14. LOMOTIL [Concomitant]
     Active Substance: ATROPINE SULFATE\DIPHENOXYLATE HYDROCHLORIDE
  15. CYANOCOBALAMIN [Concomitant]
     Active Substance: CYANOCOBALAMIN
  16. ATROPINE\DIPHENOXYLATE [Concomitant]
     Active Substance: ATROPINE\DIPHENOXYLATE
  17. ROSUVASTATIN CALCIUM [Concomitant]
     Active Substance: ROSUVASTATIN CALCIUM
  18. FLUTICASONE [Concomitant]
     Active Substance: FLUTICASONE
  19. SUMATRIPTAN SUCCINATE [Concomitant]
     Active Substance: SUMATRIPTAN SUCCINATE
  20. FLUTICASONE PROPIONATE [Concomitant]
     Active Substance: FLUTICASONE PROPIONATE
  21. ZINC GLUCONATE [Concomitant]
     Active Substance: ZINC GLUCONATE
  22. OCTREOTIDE ACETATE [Concomitant]
     Active Substance: OCTREOTIDE ACETATE
  23. MECLIZINE HYDROCHLORIDE [Concomitant]
     Active Substance: MECLIZINE HYDROCHLORIDE
  24. AIRSUPRA [Concomitant]
     Active Substance: ALBUTEROL SULFATE\BUDESONIDE
  25. ASPIRIN [Concomitant]
     Active Substance: ASPIRIN

REACTIONS (22)
  - COVID-19 [Recovered/Resolved]
  - Hypokalaemia [Unknown]
  - Dehydration [Unknown]
  - Muscle atrophy [Unknown]
  - Chapped lips [Unknown]
  - Magnesium deficiency [Unknown]
  - Iron deficiency [Unknown]
  - Frustration tolerance decreased [Not Recovered/Not Resolved]
  - Migraine [Not Recovered/Not Resolved]
  - Vision blurred [Not Recovered/Not Resolved]
  - Urinary tract infection [Not Recovered/Not Resolved]
  - Stress [Not Recovered/Not Resolved]
  - Device failure [Not Recovered/Not Resolved]
  - Incorrect dose administered [Unknown]
  - Multiple allergies [Not Recovered/Not Resolved]
  - Weight increased [Unknown]
  - Dizziness [Unknown]
  - Decreased appetite [Unknown]
  - Abdominal distension [Unknown]
  - Headache [Unknown]
  - Dyspnoea [Unknown]
  - Nasopharyngitis [Unknown]

NARRATIVE: CASE EVENT DATE: 20220801
